FAERS Safety Report 7790869-5 (Version None)
Quarter: 2011Q3

REPORT INFORMATION
  Report Type: 
  Country: None (occurrence: None)
  Receive Date: 20110930
  Receipt Date: 20110921
  Transmission Date: 20111222
  Serious: Yes (Other)
  Sender: FDA-Public Use
  Company Number: US-ASTRAZENECA-2011SE47366

PATIENT
  Age: 45 Year
  Sex: Female
  Weight: 152.4 kg

DRUGS (1)
  1. NEXIUM [Suspect]
     Indication: DYSPEPSIA
     Route: 048

REACTIONS (8)
  - PAIN [None]
  - CHEST PAIN [None]
  - MIGRAINE [None]
  - DYSPEPSIA [None]
  - CEREBRAL ISCHAEMIA [None]
  - GASTROOESOPHAGEAL REFLUX DISEASE [None]
  - INSOMNIA [None]
  - DRUG DOSE OMISSION [None]
